FAERS Safety Report 6942680-2 (Version None)
Quarter: 2010Q3

REPORT INFORMATION
  Report Type: 
  Country: None (occurrence: None)
  Receive Date: 20100826
  Receipt Date: 20100817
  Transmission Date: 20110219
  Serious: Yes (Death, Hospitalization)
  Sender: FDA-Public Use
  Company Number: FR-PERRIGO-10FR012273

PATIENT
  Age: 64 Year
  Sex: Female

DRUGS (3)
  1. CLOBETASOL PROPIONATE RX 0.05% 9F0 [Suspect]
     Indication: PEMPHIGOID
     Dosage: 30 G, QD
     Route: 061
     Dates: start: 20081201
  2. METHOTREXATE [Concomitant]
     Indication: PEMPHIGOID
     Dosage: 15 MG, WEEKLY
     Route: 065
     Dates: start: 20081201
  3. INSULIN [Concomitant]
     Indication: DIABETES MELLITUS
     Dosage: UNK
     Route: 058

REACTIONS (8)
  - ACINETOBACTER TEST POSITIVE [None]
  - NECROTISING FASCIITIS [None]
  - RENAL FAILURE [None]
  - RESPIRATORY FAILURE [None]
  - SEPTIC SHOCK [None]
  - STAPHYLOCOCCUS TEST POSITIVE [None]
  - STREPTOCOCCUS TEST POSITIVE [None]
  - TOE AMPUTATION [None]
